FAERS Safety Report 6917527-0 (Version None)
Quarter: 2010Q3

REPORT INFORMATION
  Report Type: 
  Country: None (occurrence: None)
  Receive Date: 20100806
  Receipt Date: 20100723
  Transmission Date: 20110219
  Serious: Yes (Hospitalization)
  Sender: FDA-Public Use
  Company Number: 1000015378

PATIENT
  Age: 75 Year
  Sex: Female
  Weight: 72 kg

DRUGS (3)
  1. MEMANTINE HCL [Suspect]
     Indication: DEMENTIA ALZHEIMER'S TYPE
     Dosage: 20 MG (20 MG, 1 IN 1 D)
     Dates: start: 20100514, end: 20100623
  2. CITALOPRAM HYDROBROMIDE [Concomitant]
  3. AGGRENOX [Concomitant]

REACTIONS (4)
  - FATIGUE [None]
  - HEAT STROKE [None]
  - NAUSEA [None]
  - RETCHING [None]
